FAERS Safety Report 8992712 (Version 3)
Quarter: 2013Q1

REPORT INFORMATION
  Report Type: Report from Study
  Country: US (occurrence: US)
  Receive Date: 20130101
  Receipt Date: 20130312
  Transmission Date: 20140127
  Serious: Yes (Hospitalization, Other)
  Sender: FDA-Public Use
  Company Number: US-ROCHE-1167177

PATIENT
  Age: 48 Year
  Sex: Male
  Weight: 100 kg

DRUGS (7)
  1. PEGASYS [Suspect]
     Indication: HEPATITIS C
     Route: 058
     Dates: start: 20121127
  2. COPEGUS [Suspect]
     Indication: PRODUCT USED FOR UNKNOWN INDICATION
     Route: 065
  3. INCIVEK [Suspect]
     Indication: PRODUCT USED FOR UNKNOWN INDICATION
     Route: 065
  4. ALPRAZOLAM [Concomitant]
     Indication: GENERALISED ANXIETY DISORDER
     Route: 048
  5. ALPRAZOLAM [Concomitant]
     Route: 048
  6. ALPRAZOLAM [Concomitant]
     Route: 048
     Dates: start: 20121120
  7. INSULIN [Concomitant]
     Route: 065

REACTIONS (9)
  - Tremor [Recovered/Resolved]
  - Hyperglycaemia [Recovered/Resolved]
  - Influenza like illness [Unknown]
  - Asthenia [Recovering/Resolving]
  - Middle insomnia [Unknown]
  - Anxiety [Recovered/Resolved]
  - Chills [Not Recovered/Not Resolved]
  - Pruritus [Unknown]
  - Malaise [Unknown]
